FAERS Safety Report 18030931 (Version 2)
Quarter: 2022Q4

REPORT INFORMATION
  Report Type: Other
  Country: US (occurrence: None)
  Receive Date: 20200715
  Receipt Date: 20221205
  Transmission Date: 20230113
  Serious: Yes (Hospitalization)
  Sender: FDA-Public Use
  Company Number: US-ROCHE-2640587

PATIENT
  Age: 49 Year
  Sex: Female
  Weight: 64.922 kg

DRUGS (4)
  1. OCREVUS [Suspect]
     Active Substance: OCRELIZUMAB
     Indication: Relapsing-remitting multiple sclerosis
     Dosage: TWICE A YEAR
     Route: 042
     Dates: start: 20200204
  2. SUMATRIPTAN [Concomitant]
     Active Substance: SUMATRIPTAN
     Dosage: NO MORE THAN 2 TABLETS IN 24 HOURS AS NEEDED
     Route: 048
     Dates: start: 2017
  3. ZOFRAN [Concomitant]
     Active Substance: ONDANSETRON HYDROCHLORIDE
     Dates: start: 2017
  4. FIORICET [Concomitant]
     Active Substance: ACETAMINOPHEN\BUTALBITAL\CAFFEINE
     Dates: start: 2017

REACTIONS (6)
  - Upper respiratory tract infection [Recovered/Resolved]
  - Lower respiratory tract infection [Recovered/Resolved]
  - Chronic obstructive pulmonary disease [Not Recovered/Not Resolved]
  - Pain [Recovered/Resolved]
  - Bronchitis [Not Recovered/Not Resolved]
  - COVID-19 [Recovered/Resolved]

NARRATIVE: CASE EVENT DATE: 20200301
